FAERS Safety Report 6902547-2 (Version None)
Quarter: 2010Q3

REPORT INFORMATION
  Report Type: 
  Country: None (occurrence: None)
  Receive Date: 20100730
  Receipt Date: 20100719
  Transmission Date: 20110219
  Serious: Yes (Hospitalization)
  Sender: FDA-Public Use
  Company Number: 2010AL001994

PATIENT
  Sex: Female
  Weight: 87.2267 kg

DRUGS (10)
  1. OXYCODONE HCL [Suspect]
     Indication: PAIN
     Dosage: 15 MG; PRN; POOOO
     Route: 048
     Dates: start: 20090125
  2. SUNITINIB MALATE [Concomitant]
  3. OXYCONTIN [Concomitant]
  4. SANDOSTATIN [Concomitant]
  5. RITALIN [Concomitant]
  6. CITALOPRAM HYDROBROMIDE [Concomitant]
  7. CALCITRIOL [Concomitant]
  8. NORVASC [Concomitant]
  9. PREVACID [Concomitant]
  10. CALCIUM CITRATE [Concomitant]

REACTIONS (5)
  - FATIGUE [None]
  - MENTAL STATUS CHANGES [None]
  - NAUSEA [None]
  - OVERDOSE [None]
  - VITAMIN D DECREASED [None]
